FAERS Safety Report 5274019-5 (Version None)
Quarter: 2007Q1

REPORT INFORMATION
  Report Type: 
  Country: None (occurrence: None)
  Receive Date: 20070323
  Receipt Date: 20070314
  Transmission Date: 20070707
  Serious: Yes (Other)
  Sender: FDA-Public Use
  Company Number: GB-GLAXOSMITHKLINE-B0463206A

PATIENT
  Age: 12 Year
  Sex: Male
  Weight: 40.1 kg

DRUGS (3)
  1. LAMOTRIGINE [Suspect]
     Dosage: 200MG PER DAY
  2. ACETAZOLAMIDE [Concomitant]
     Dosage: 125MG THREE TIMES PER DAY
     Route: 048
     Dates: start: 19980101
  3. KEPPRA [Concomitant]
     Indication: EPILEPSY
     Dosage: 500MG TWICE PER DAY
     Route: 048
     Dates: start: 20060501

REACTIONS (1)
  - GROWTH RETARDATION [None]
